FAERS Safety Report 8140474-6 (Version None)
Quarter: 2012Q1

REPORT INFORMATION
  Report Type: 
  Country: None (occurrence: None)
  Receive Date: 20120216
  Receipt Date: 20120213
  Transmission Date: 20120608
  Serious: Yes (Other)
  Sender: FDA-Public Use
  Company Number: US-PFIZER INC-2012039370

PATIENT
  Sex: Female
  Weight: 90.703 kg

DRUGS (3)
  1. SYNTHROID [Concomitant]
     Indication: THYROID DISORDER
     Dosage: 137 UG, DAILY
  2. WELLBUTRIN [Concomitant]
     Indication: DEPRESSION
     Dosage: 150 MG, DAILY
  3. PREMARIN [Suspect]
     Indication: HORMONE REPLACEMENT THERAPY
     Dosage: 0.0625 MG, DAILY
     Route: 048
     Dates: start: 19990101

REACTIONS (2)
  - SYSTEMIC LUPUS ERYTHEMATOSUS [None]
  - HEPATIC FAILURE [None]
